FAERS Safety Report 17510401 (Version 5)
Quarter: 2020Q2

REPORT INFORMATION
  Report Type: Report from Study
  Country: US (occurrence: US)
  Receive Date: 20200306
  Receipt Date: 20200612
  Transmission Date: 20200713
  Serious: Yes (Hospitalization, Other)
  Sender: FDA-Public Use
  Company Number: US-BAYER-2020-034320

PATIENT
  Age: 54 Year
  Sex: Male
  Weight: 90.9 kg

DRUGS (8)
  1. NIVOLUMAB [Suspect]
     Active Substance: NIVOLUMAB
     Indication: RECTAL CANCER
     Dosage: 480 MG IV ON DAY 1, 240 MG ON DAY 15
     Route: 042
     Dates: start: 20200128
  2. NIVOLUMAB [Suspect]
     Active Substance: NIVOLUMAB
     Indication: RECTAL CANCER
     Dosage: 480 MG IV ON DAY 1, 240 MG ON DAY 15
     Route: 042
     Dates: start: 20200225
  3. COPANLISIB. [Suspect]
     Active Substance: COPANLISIB
     Indication: RECTAL CANCER
     Dosage: 60 MG ON DAYS 1, 8 AND 15UNK
     Route: 042
     Dates: start: 20200225
  4. COPANLISIB. [Suspect]
     Active Substance: COPANLISIB
     Indication: RECTAL CANCER
     Dosage: 120 MG
     Route: 042
     Dates: start: 20200204
  5. NIVOLUMAB [Suspect]
     Active Substance: NIVOLUMAB
     Indication: RECTAL CANCER
     Dosage: 240 MG
     Route: 042
     Dates: start: 20200211
  6. COPANLISIB. [Suspect]
     Active Substance: COPANLISIB
     Indication: RECTAL CANCER
     Dosage: 60 MG ON DAYS 1, 8 AND 15
     Route: 042
     Dates: start: 20200128
  7. METFORMIN [Concomitant]
     Active Substance: METFORMIN HYDROCHLORIDE
  8. METFORMIN [Concomitant]
     Active Substance: METFORMIN HYDROCHLORIDE
     Dosage: 1000 MG, BID

REACTIONS (2)
  - Pleural effusion [Recovering/Resolving]
  - Glucose tolerance impaired [Recovering/Resolving]

NARRATIVE: CASE EVENT DATE: 20200211
